FAERS Safety Report 6882979-1 (Version None)
Quarter: 2010Q3

REPORT INFORMATION
  Report Type: 
  Country: None (occurrence: None)
  Receive Date: 20100727
  Receipt Date: 20100713
  Transmission Date: 20110219
  Serious: Yes (Other)
  Sender: FDA-Public Use
  Company Number: 1000015228

PATIENT
  Age: 53 Year
  Sex: Male
  Weight: 75 kg

DRUGS (3)
  1. CITALOPRAM HYDROBROMIDE [Suspect]
     Dosage: 15 TABLETS (ONCE), ORAL
     Route: 048
     Dates: start: 20100712, end: 20100712
  2. ATOSIL (25 MILLIGRAM, TABLETS) [Suspect]
     Dosage: (625 MG,ONCE), ORAL
     Route: 048
     Dates: start: 20100712, end: 20100712
  3. DELIX (5 MILLIGRAM, TABLETS) [Suspect]
     Dosage: (100 MG,ONCE), ORAL
     Route: 048
     Dates: start: 20100712, end: 20100712

REACTIONS (3)
  - MULTIPLE DRUG OVERDOSE [None]
  - SUICIDE ATTEMPT [None]
  - SYSTOLIC HYPERTENSION [None]
